FAERS Safety Report 6756071-0 (Version None)
Quarter: 2010Q2

REPORT INFORMATION
  Report Type: 
  Country: None (occurrence: None)
  Receive Date: 20100604
  Receipt Date: 20100525
  Transmission Date: 20101027
  Serious: Yes (Other)
  Sender: FDA-Public Use
  Company Number: US-PFIZER INC-2010065438

PATIENT
  Sex: Male

DRUGS (2)
  1. GLUCOTROL [Suspect]
  2. GLUCOPHAGE [Suspect]

REACTIONS (1)
  - GLAUCOMA [None]
